FAERS Safety Report 7629166-7 (Version None)
Quarter: 2011Q3

REPORT INFORMATION
  Report Type: 
  Country: None (occurrence: None)
  Receive Date: 20110722
  Receipt Date: 20110712
  Transmission Date: 20111222
  Serious: Yes (Other)
  Sender: FDA-Public Use
  Company Number: PHHY2011NL63011

PATIENT
  Sex: Male

DRUGS (3)
  1. ZOMETA [Suspect]
     Indication: PROSTATE CANCER METASTATIC
     Dosage: 4 MG/5 ML, EVERY 28 DAYS
     Dates: start: 20101130
  2. ZOMETA [Suspect]
     Dosage: 4 MG/5 ML, EVERY 28 DAYS
     Dates: start: 20110614
  3. ZOMETA [Suspect]
     Dosage: 4 MG/5 ML, EVERY 28 DAYS
     Dates: start: 20110712

REACTIONS (6)
  - PROSTATIC SPECIFIC ANTIGEN INCREASED [None]
  - GENERAL PHYSICAL HEALTH DETERIORATION [None]
  - OEDEMA PERIPHERAL [None]
  - MUSCULAR WEAKNESS [None]
  - GAIT DISTURBANCE [None]
  - LOWER LIMB FRACTURE [None]
